FAERS Safety Report 6306346-4 (Version None)
Quarter: 2009Q3

REPORT INFORMATION
  Report Type: 
  Country: None (occurrence: None)
  Receive Date: 20090810
  Receipt Date: 20080729
  Transmission Date: 20100115
  Serious: Yes (Other)
  Sender: FDA-Public Use
  Company Number: 2008AL008831

PATIENT
  Age: 46 Year
  Sex: Male
  Weight: 90.2658 kg

DRUGS (9)
  1. DIGOXIN [Suspect]
     Dosage: 0.125MG, DAILY, PO
     Route: 048
  2. SYNTHROID [Concomitant]
  3. LOVAZA [Concomitant]
  4. CIALIS [Concomitant]
  5. CRESTOR [Concomitant]
  6. GLYBURIDE [Concomitant]
  7. JANUMET [Concomitant]
  8. COREG [Concomitant]
  9. VITAMIN D [Concomitant]

REACTIONS (1)
  - INJURY [None]
